FAERS Safety Report 25487800 (Version 1)
Quarter: 2025Q2

REPORT INFORMATION
  Report Type: Spontaneous
  Country: ES (occurrence: ES)
  Receive Date: 20250627
  Receipt Date: 20250627
  Transmission Date: 20250717
  Serious: Yes (Other)
  Sender: FRESENIUS KABI
  Company Number: None

PATIENT
  Age: 76 Year
  Sex: Male

DRUGS (5)
  1. OXALIPLATIN [Suspect]
     Active Substance: OXALIPLATIN
     Indication: Colon cancer
     Dosage: 85MG/M2 EVERY 14 DAYS
     Route: 042
     Dates: start: 20241021, end: 20250515
  2. IRINOTECAN [Suspect]
     Active Substance: IRINOTECAN
     Indication: Colon cancer
     Dosage: 180 MG/M2 EVERY 14 DAYS
     Route: 042
     Dates: start: 20241021, end: 20250515
  3. FLUOROURACIL [Suspect]
     Active Substance: FLUOROURACIL
     Indication: Colon cancer
     Dosage: 400 MG/M2 EVERY 14 DAYS
     Route: 042
     Dates: start: 20241021, end: 20250515
  4. MVASI [Suspect]
     Active Substance: BEVACIZUMAB-AWWB
     Indication: Colon cancer
     Dosage: 5MG/KG EVERY 14 DAYS?CONCENTRATE FOR SOLUTION FOR INFUSION
     Route: 042
     Dates: start: 20241021, end: 20250515
  5. CALCIUM FOLINATE ALTAN 350 mg POWDER FOR INJECTION SOLUTION EFG, 1 via [Concomitant]
     Indication: Colon cancer
     Route: 042
     Dates: start: 20241021

REACTIONS (2)
  - Enteritis [Recovered/Resolved]
  - COVID-19 [Recovered/Resolved]

NARRATIVE: CASE EVENT DATE: 20250517
